FAERS Safety Report 22959542 (Version 4)
Quarter: 2025Q2

REPORT INFORMATION
  Report Type: Spontaneous
  Country: GB (occurrence: GB)
  Receive Date: 20230920
  Receipt Date: 20250520
  Transmission Date: 20250716
  Serious: Yes (Other)
  Sender: CIPLA
  Company Number: None

PATIENT

DRUGS (88)
  1. ESOMEPRAZOLE [Suspect]
     Active Substance: ESOMEPRAZOLE
     Indication: Reflux laryngitis
     Route: 065
  2. APIXABAN [Suspect]
     Active Substance: APIXABAN
     Indication: Cerebrovascular accident prophylaxis
     Dosage: 10 MILLIGRAM, QD
     Route: 065
     Dates: start: 20230207, end: 20230207
  3. CETIRIZINE [Suspect]
     Active Substance: CETIRIZINE HYDROCHLORIDE
     Indication: Product used for unknown indication
     Dosage: 10 MILLIGRAM, QD
     Route: 050
  4. ASTRAZENECA COVID-19 VACCINE [Suspect]
     Active Substance: AZD-1222
     Indication: COVID-19 immunisation
     Route: 065
  5. ASTRAZENECA COVID-19 VACCINE [Suspect]
     Active Substance: AZD-1222
     Route: 065
  6. ASTRAZENECA COVID-19 VACCINE [Suspect]
     Active Substance: AZD-1222
     Route: 065
     Dates: start: 20210312
  7. ASTRAZENECA COVID-19 VACCINE [Suspect]
     Active Substance: AZD-1222
     Route: 065
     Dates: start: 20210517
  8. ASTRAZENECA COVID-19 VACCINE [Suspect]
     Active Substance: AZD-1222
     Route: 065
     Dates: start: 20210622, end: 20210622
  9. ASTRAZENECA COVID-19 VACCINE [Suspect]
     Active Substance: AZD-1222
     Route: 065
  10. ASTRAZENECA COVID-19 VACCINE [Suspect]
     Active Substance: AZD-1222
     Route: 065
     Dates: start: 20221214
  11. IMDUR [Suspect]
     Active Substance: ISOSORBIDE MONONITRATE
     Indication: Product used for unknown indication
     Route: 065
  12. ISOSORBIDE DINITRATE [Suspect]
     Active Substance: ISOSORBIDE DINITRATE
     Indication: Product used for unknown indication
     Dosage: 50 MILLIGRAM, QD
     Route: 048
  13. LANSOPRAZOLE [Suspect]
     Active Substance: LANSOPRAZOLE
     Indication: Atrial fibrillation
     Dosage: 30 MILLIGRAM, QD
     Route: 050
  14. LINAGLIPTIN [Suspect]
     Active Substance: LINAGLIPTIN
     Indication: Product used for unknown indication
     Dosage: 5 MILLIGRAM, QD
     Route: 065
  15. LINAGLIPTIN [Suspect]
     Active Substance: LINAGLIPTIN
     Indication: Product used for unknown indication
     Dosage: 5 MILLIGRAM, QD
     Route: 065
  16. SIMVASTATIN [Suspect]
     Active Substance: SIMVASTATIN
     Indication: Product used for unknown indication
     Dosage: 40 MILLIGRAM, QD
     Route: 050
  17. BISOPROLOL FUMARATE [Suspect]
     Active Substance: BISOPROLOL FUMARATE
     Indication: Cerebrovascular accident prophylaxis
     Dosage: 5 MILLIGRAM, QD
     Route: 065
     Dates: start: 20180207, end: 20180207
  18. CANDESARTAN CILEXETIL [Suspect]
     Active Substance: CANDESARTAN CILEXETIL
     Indication: Product used for unknown indication
     Route: 065
     Dates: start: 20220401, end: 20230316
  19. LEVOTHYROXINE SODIUM [Suspect]
     Active Substance: LEVOTHYROXINE SODIUM
     Indication: Product used for unknown indication
     Route: 065
  20. LEVOTHYROXINE SODIUM [Suspect]
     Active Substance: LEVOTHYROXINE SODIUM
     Dosage: 125 MICROGRAM, QD
     Route: 065
  21. LEVOTHYROXINE SODIUM [Suspect]
     Active Substance: LEVOTHYROXINE SODIUM
     Dosage: 50 MICROGRAM, QD
     Route: 065
  22. ISOSORBIDE MONONITRATE [Suspect]
     Active Substance: ISOSORBIDE MONONITRATE
     Indication: Product used for unknown indication
     Dosage: 50 MILLIGRAM, QD
     Route: 065
  23. FELODIPINE [Suspect]
     Active Substance: FELODIPINE
     Indication: Blood pressure abnormal
     Route: 065
  24. DIGOXIN [Suspect]
     Active Substance: DIGOXIN
     Indication: Cerebrovascular accident prophylaxis
     Dosage: 82.5 MICROGRAM, QD
     Route: 065
  25. HYDROCHLOROTHIAZIDE [Suspect]
     Active Substance: HYDROCHLOROTHIAZIDE
     Indication: Product used for unknown indication
     Dosage: 2 MILLIGRAM, QD
     Route: 065
  26. DAPAGLIFLOZIN [Suspect]
     Active Substance: DAPAGLIFLOZIN
     Indication: Ill-defined disorder
     Route: 065
  27. INSULIN GLARGINE [Concomitant]
     Active Substance: INSULIN GLARGINE
     Indication: Product used for unknown indication
     Route: 065
     Dates: start: 20210113, end: 20230106
  28. ALBUTEROL SULFATE [Concomitant]
     Active Substance: ALBUTEROL SULFATE
     Indication: Product used for unknown indication
     Route: 065
     Dates: start: 20220818
  29. COMIRNATY [Concomitant]
     Indication: Product used for unknown indication
     Route: 065
  30. ASTRAZENECA COVID-19 VACCINE [Concomitant]
     Active Substance: AZD-1222
     Indication: Product used for unknown indication
     Route: 065
     Dates: start: 20210601, end: 20220512
  31. FLUTICASONE PROPIONATE [Concomitant]
     Active Substance: FLUTICASONE PROPIONATE
     Indication: Product used for unknown indication
     Route: 065
  32. GAVISCON [CALCIUM CARBONATE;POTASSIUM BICARBONATE;SODIUM ALGINATE] [Concomitant]
     Indication: Product used for unknown indication
     Route: 065
  33. INSULIN GLARGINE [Concomitant]
     Active Substance: INSULIN GLARGINE
     Indication: Product used for unknown indication
     Route: 065
     Dates: start: 20211003, end: 20230106
  34. POLYETHYLENE GLYCOL 3350\POTASSIUM CHLORIDE\SODIUM BICARBONATE\SODIUM [Concomitant]
     Active Substance: POLYETHYLENE GLYCOL 3350\POTASSIUM CHLORIDE\SODIUM BICARBONATE\SODIUM CHLORIDE
     Indication: Product used for unknown indication
     Route: 065
  35. LOSARTAN [Concomitant]
     Active Substance: LOSARTAN
     Indication: Product used for unknown indication
     Dosage: UNK, QD
     Route: 065
     Dates: start: 20210628
  36. LOSARTAN [Concomitant]
     Active Substance: LOSARTAN
     Route: 065
  37. MOVELAT [ADRENAL CORTICAL EXTRACT;MUCOPOLYSACCHARIDE POLYSULFURIC ACID [Concomitant]
     Indication: Product used for unknown indication
     Route: 065
  38. SILDENAFIL [Concomitant]
     Active Substance: SILDENAFIL
     Indication: Product used for unknown indication
     Route: 065
  39. SENNOSIDES A AND B [Concomitant]
     Active Substance: SENNOSIDES A AND B
     Indication: Product used for unknown indication
     Route: 065
     Dates: start: 20211217
  40. SIMVASTATIN [Concomitant]
     Active Substance: SIMVASTATIN
     Indication: Product used for unknown indication
     Route: 065
  41. SIMVASTATIN [Concomitant]
     Active Substance: SIMVASTATIN
     Route: 065
     Dates: start: 20221123
  42. SIMVASTATIN [Concomitant]
     Active Substance: SIMVASTATIN
     Route: 065
     Dates: start: 20221123
  43. EDOXABAN [Concomitant]
     Active Substance: EDOXABAN
     Indication: Product used for unknown indication
     Route: 065
     Dates: start: 20221205
  44. LACTULOSE [Concomitant]
     Active Substance: LACTULOSE
     Indication: Product used for unknown indication
     Route: 065
  45. LACTULOSE [Concomitant]
     Active Substance: LACTULOSE
     Route: 065
     Dates: start: 20221104
  46. OLANZAPINE [Concomitant]
     Active Substance: OLANZAPINE
     Indication: Product used for unknown indication
     Route: 065
  47. DOCUSATE SODIUM [Concomitant]
     Active Substance: DOCUSATE SODIUM
     Indication: Product used for unknown indication
     Route: 065
  48. BISOPROLOL [Concomitant]
     Active Substance: BISOPROLOL
     Indication: Product used for unknown indication
     Route: 065
     Dates: start: 20221205
  49. BISOPROLOL [Concomitant]
     Active Substance: BISOPROLOL
     Route: 065
     Dates: start: 20230301
  50. SPIRONOLACTONE [Concomitant]
     Active Substance: SPIRONOLACTONE
     Indication: Product used for unknown indication
     Route: 065
  51. SPIRONOLACTONE [Concomitant]
     Active Substance: SPIRONOLACTONE
     Route: 065
     Dates: start: 20230105
  52. BENDROFLUMETHIAZIDE [Concomitant]
     Active Substance: BENDROFLUMETHIAZIDE
     Indication: Product used for unknown indication
     Route: 065
  53. BENDROFLUMETHIAZIDE [Concomitant]
     Active Substance: BENDROFLUMETHIAZIDE
     Route: 065
     Dates: start: 20221123
  54. OMEPRAZOLE [Concomitant]
     Active Substance: OMEPRAZOLE
     Indication: Product used for unknown indication
     Route: 065
     Dates: start: 20221205
  55. OMEPRAZOLE [Concomitant]
     Active Substance: OMEPRAZOLE
     Route: 065
     Dates: start: 20221123
  56. LANSOPRAZOLE [Concomitant]
     Active Substance: LANSOPRAZOLE
     Indication: Product used for unknown indication
     Route: 065
  57. CHLORAMPHENICOL [Concomitant]
     Active Substance: CHLORAMPHENICOL
     Indication: Product used for unknown indication
     Route: 065
     Dates: start: 20230318
  58. SENNA LEAF [Concomitant]
     Active Substance: SENNA LEAF
     Indication: Product used for unknown indication
     Route: 065
     Dates: start: 20211217
  59. METFORMIN [Concomitant]
     Active Substance: METFORMIN HYDROCHLORIDE
     Indication: Diabetes mellitus
     Route: 065
  60. METFORMIN [Concomitant]
     Active Substance: METFORMIN HYDROCHLORIDE
     Route: 065
  61. NITROGLYCERIN [Concomitant]
     Active Substance: NITROGLYCERIN
     Indication: Product used for unknown indication
     Route: 065
  62. ASPIRIN [Concomitant]
     Active Substance: ASPIRIN
     Indication: Product used for unknown indication
     Route: 065
     Dates: start: 20230126
  63. ESTRIOL [Concomitant]
     Active Substance: ESTRIOL
     Indication: Product used for unknown indication
     Route: 065
     Dates: start: 20211123
  64. FEXOFENADINE [Concomitant]
     Active Substance: FEXOFENADINE HYDROCHLORIDE
     Indication: Product used for unknown indication
     Route: 065
     Dates: start: 20230317
  65. GLICLAZIDE [Concomitant]
     Active Substance: GLICLAZIDE
     Indication: Product used for unknown indication
     Route: 065
  66. WARFARIN SODIUM [Concomitant]
     Active Substance: WARFARIN SODIUM
     Indication: Product used for unknown indication
     Route: 065
  67. SITAGLIPTIN [Concomitant]
     Active Substance: SITAGLIPTIN
     Indication: Product used for unknown indication
     Route: 065
  68. SITAGLIPTIN [Concomitant]
     Active Substance: SITAGLIPTIN
     Route: 065
  69. DAPAGLIFLOZIN [Concomitant]
     Active Substance: DAPAGLIFLOZIN
     Indication: Diabetes mellitus
     Route: 065
  70. DAPAGLIFLOZIN [Concomitant]
     Active Substance: DAPAGLIFLOZIN
     Route: 065
     Dates: start: 20220512
  71. AMITRIPTYLINE HYDROCHLORIDE [Concomitant]
     Active Substance: AMITRIPTYLINE HYDROCHLORIDE
     Indication: Product used for unknown indication
     Route: 065
  72. BUMETANIDE [Concomitant]
     Active Substance: BUMETANIDE
     Indication: Product used for unknown indication
     Route: 065
     Dates: start: 20220525, end: 20230217
  73. DOXAZOSIN [Concomitant]
     Active Substance: DOXAZOSIN MESYLATE
     Indication: Product used for unknown indication
     Route: 065
  74. ATORVASTATIN [Concomitant]
     Active Substance: ATORVASTATIN
     Indication: Product used for unknown indication
     Route: 065
  75. SILDENAFIL [Concomitant]
     Active Substance: SILDENAFIL
     Indication: Product used for unknown indication
     Route: 065
  76. FOSFOMYCIN [Concomitant]
     Active Substance: FOSFOMYCIN
     Indication: Product used for unknown indication
     Route: 065
     Dates: start: 20230327, end: 20230328
  77. AMLODIPINE [Concomitant]
     Active Substance: AMLODIPINE BESYLATE
     Indication: Product used for unknown indication
     Route: 065
  78. CITALOPRAM [Concomitant]
     Active Substance: CITALOPRAM
     Indication: Product used for unknown indication
     Route: 065
     Dates: start: 20230318
  79. RAMIPRIL [Concomitant]
     Active Substance: RAMIPRIL
     Indication: Product used for unknown indication
     Route: 065
     Dates: start: 20221205
  80. RAMIPRIL [Concomitant]
     Active Substance: RAMIPRIL
     Route: 065
  81. GABAPENTIN [Concomitant]
     Active Substance: GABAPENTIN
     Indication: Product used for unknown indication
     Route: 065
  82. PREDNISOLONE [Concomitant]
     Active Substance: PREDNISOLONE
     Indication: Product used for unknown indication
     Route: 065
  83. ROSUVASTATIN [Concomitant]
     Active Substance: ROSUVASTATIN
     Indication: Product used for unknown indication
     Route: 065
     Dates: start: 20210317, end: 20230217
  84. ACETAMINOPHEN [Concomitant]
     Active Substance: ACETAMINOPHEN
     Indication: Product used for unknown indication
     Route: 065
     Dates: start: 20230111, end: 20230123
  85. LEVOTHYROXINE SODIUM [Concomitant]
     Active Substance: LEVOTHYROXINE SODIUM
     Indication: Product used for unknown indication
     Route: 065
  86. SOTALOL [Concomitant]
     Active Substance: SOTALOL
     Indication: Product used for unknown indication
     Route: 065
  87. ACETAMINOPHEN\CODEINE PHOSPHATE [Concomitant]
     Active Substance: ACETAMINOPHEN\CODEINE PHOSPHATE
     Indication: Product used for unknown indication
     Route: 065
  88. MINERAL OIL [Concomitant]
     Active Substance: MINERAL OIL
     Indication: Product used for unknown indication
     Route: 065

REACTIONS (66)
  - Angioedema [Recovered/Resolved]
  - Tinnitus [Not Recovered/Not Resolved]
  - Back pain [Recovered/Resolved]
  - Hyperhidrosis [Unknown]
  - Fatigue [Recovered/Resolved]
  - Myocardial infarction [Recovered/Resolved]
  - Pericarditis [Not Recovered/Not Resolved]
  - Tachycardia [Unknown]
  - Muscular weakness [Unknown]
  - Anxiety [Not Recovered/Not Resolved]
  - Visual impairment [Recovering/Resolving]
  - Malaise [Unknown]
  - Pruritus [Recovering/Resolving]
  - Abdominal discomfort [Recovered/Resolved]
  - Amnesia [Not Recovered/Not Resolved]
  - Diplopia [Recovering/Resolving]
  - Alopecia [Recovered/Resolved]
  - Blood glucose increased [Unknown]
  - Pain [Recovered/Resolved]
  - Memory impairment [Recovering/Resolving]
  - Drug abuse [Unknown]
  - Anosmia [Recovered/Resolved]
  - Heart rate increased [Unknown]
  - COVID-19 [Recovered/Resolved]
  - Vomiting [Recovered/Resolved]
  - Dehydration [Unknown]
  - Lip swelling [Recovering/Resolving]
  - Dyspnoea [Unknown]
  - Dry skin [Not Recovered/Not Resolved]
  - Cardiospasm [Not Recovered/Not Resolved]
  - Ventricular tachycardia [Not Recovered/Not Resolved]
  - Subarachnoid haemorrhage [Recovered/Resolved]
  - Dizziness [Recovered/Resolved]
  - Palmoplantar keratoderma [Not Recovered/Not Resolved]
  - Eye pruritus [Recovered/Resolved]
  - Transient ischaemic attack [Recovered/Resolved]
  - Hallucination [Recovered/Resolved]
  - Immunisation [Recovered/Resolved]
  - Facial pain [Recovered/Resolved]
  - Feeling abnormal [Unknown]
  - Pruritus genital [Recovered/Resolved]
  - Blindness [Not Recovered/Not Resolved]
  - Nausea [Not Recovered/Not Resolved]
  - Sleep terror [Recovered/Resolved]
  - Abdominal pain upper [Unknown]
  - Cognitive disorder [Recovered/Resolved]
  - Vasculitis [Not Recovered/Not Resolved]
  - Headache [Not Recovered/Not Resolved]
  - Carotid artery occlusion [Recovered/Resolved]
  - Tension headache [Not Recovered/Not Resolved]
  - Muscle twitching [Unknown]
  - Pain of skin [Recovered/Resolved]
  - Chest pain [Unknown]
  - Diarrhoea [Recovered/Resolved]
  - Arthralgia [Recovered/Resolved]
  - Disturbance in attention [Recovered/Resolved]
  - Peripheral swelling [Recovered/Resolved]
  - Atrial tachycardia [Not Recovered/Not Resolved]
  - Rash [Recovering/Resolving]
  - Insomnia [Unknown]
  - Palpitations [Unknown]
  - Migraine [Not Recovered/Not Resolved]
  - Pyrexia [Unknown]
  - Off label use [Recovered/Resolved with Sequelae]
  - Intentional product misuse [Unknown]
  - Intentional product use issue [Unknown]

NARRATIVE: CASE EVENT DATE: 20180207
